FAERS Safety Report 21116639 (Version 2)
Quarter: 2022Q3

REPORT INFORMATION
  Report Type: Report from Study
  Country: ES (occurrence: ES)
  Receive Date: 20220722
  Receipt Date: 20220726
  Transmission Date: 20221027
  Serious: Yes (Other)
  Sender: FDA-Public Use
  Company Number: ES-BRISTOL-MYERS SQUIBB COMPANY-2022-075671

PATIENT
  Age: 80 Year
  Sex: Female
  Weight: 47 kg

DRUGS (5)
  1. LEVOTHYROXINE [Concomitant]
     Active Substance: LEVOTHYROXINE
     Indication: Product used for unknown indication
     Dosage: ONGOING.
     Route: 048
     Dates: start: 20200625
  2. BISOPROLOL [Concomitant]
     Active Substance: BISOPROLOL
     Indication: Product used for unknown indication
     Dosage: ONGOING.
     Route: 048
     Dates: start: 20200625
  3. APIXABAN [Concomitant]
     Active Substance: APIXABAN
     Indication: Prophylaxis
     Dosage: ONGOING.
     Route: 048
     Dates: start: 20200625
  4. LETROZOLE [Concomitant]
     Active Substance: LETROZOLE
     Indication: Prophylaxis
     Dosage: ONGOING.
     Route: 048
     Dates: start: 20210601
  5. LEVOTHYROXINE SODIUM [Concomitant]
     Active Substance: LEVOTHYROXINE SODIUM
     Indication: Prophylaxis
     Dosage: ONGOING.
     Route: 048
     Dates: start: 20220217

REACTIONS (1)
  - Scleroderma [Not Recovered/Not Resolved]

NARRATIVE: CASE EVENT DATE: 20220714
